FAERS Safety Report 18717046 (Version 2)
Quarter: 2023Q2

REPORT INFORMATION
  Report Type: Spontaneous
  Country: US (occurrence: US)
  Receive Date: 20210108
  Receipt Date: 20230502
  Transmission Date: 20230722
  Serious: Yes (Hospitalization)
  Sender: FDA-Public Use
  Company Number: US-MYLANLABS-2021M1000266

PATIENT
  Age: 81 Year
  Sex: Male

DRUGS (12)
  1. FUROSEMIDE [Suspect]
     Active Substance: FUROSEMIDE
     Indication: Diuretic therapy
     Dosage: UNK, CONTINUOUS
     Route: 042
  2. FUROSEMIDE [Suspect]
     Active Substance: FUROSEMIDE
     Indication: Oedema
     Dosage: DOSE OF FUROSEMIDE WAS REDUCED
     Route: 042
  3. FUROSEMIDE [Suspect]
     Active Substance: FUROSEMIDE
     Indication: Essential hypertension
  4. FUROSEMIDE [Suspect]
     Active Substance: FUROSEMIDE
     Indication: Pulmonary hypertension
  5. CHLOROTHIAZIDE [Suspect]
     Active Substance: CHLOROTHIAZIDE
     Indication: Diuretic therapy
     Dosage: UNK, BOLUS DOSES
     Route: 065
  6. CHLOROTHIAZIDE [Suspect]
     Active Substance: CHLOROTHIAZIDE
     Indication: Oedema
  7. CHLOROTHIAZIDE [Suspect]
     Active Substance: CHLOROTHIAZIDE
     Indication: Essential hypertension
  8. CHLOROTHIAZIDE [Suspect]
     Active Substance: CHLOROTHIAZIDE
     Indication: Pulmonary hypertension
  9. POTASSIUM CHLORIDE [Suspect]
     Active Substance: POTASSIUM CHLORIDE
     Indication: Metabolic alkalosis
     Dosage: UNK, TO MAINTAIN A NORMAL SERUM LEVEL OF 3.6MMOL/L
     Route: 065
  10. ACETAZOLAMIDE [Suspect]
     Active Substance: ACETAZOLAMIDE
     Indication: Metabolic alkalosis
     Dosage: UNK
     Route: 065
  11. SODIUM THIOSULFATE [Suspect]
     Active Substance: SODIUM THIOSULFATE
     Indication: Metabolic alkalosis
     Dosage: 25 GRAM
     Route: 065
  12. TRIAMTERENE [Concomitant]
     Active Substance: TRIAMTERENE
     Indication: Metabolic alkalosis
     Dosage: UNK
     Route: 065

REACTIONS (4)
  - Metabolic alkalosis [Recovering/Resolving]
  - Blood potassium decreased [Recovering/Resolving]
  - Drug ineffective [Unknown]
  - Off label use [Unknown]
